FAERS Safety Report 4673380-X (Version None)
Quarter: 2005Q2

REPORT INFORMATION
  Report Type: 
  Country: None (occurrence: None)
  Receive Date: 20050525
  Receipt Date: 20050315
  Transmission Date: 20051028
  Serious: Yes (Other)
  Sender: FDA-Public Use
  Company Number: FR-ROCHE-399036

PATIENT
  Age: 63 Year
  Sex: Male

DRUGS (7)
  1. PEGASYS [Suspect]
     Indication: HEPATITIS C
     Route: 058
     Dates: start: 20040601, end: 20041201
  2. COPEGUS [Suspect]
     Indication: HEPATITIS C
     Route: 048
     Dates: start: 20040601, end: 20041201
  3. TERALITHE [Concomitant]
     Dosage: ONE AND A HALF IN THE MORNING AND ONE AND A HALF AT NIGHT.
  4. ZYPREXA [Concomitant]
     Dosage: ONE IN THE MORNING AND ONE AT NIGHT
  5. BUSPAR [Concomitant]
  6. DEROXAT [Concomitant]
  7. EUPHYTOSE [Concomitant]

REACTIONS (9)
  - ANAEMIA [None]
  - ATRIAL TACHYCARDIA [None]
  - ENCEPHALOPATHY [None]
  - FALL [None]
  - LOSS OF CONSCIOUSNESS [None]
  - MYOCLONUS [None]
  - NODAL RHYTHM [None]
  - PARKINSONISM [None]
  - SINOATRIAL BLOCK [None]
